FAERS Safety Report 7864617-4 (Version None)
Quarter: 2011Q4

REPORT INFORMATION
  Report Type: 
  Country: None (occurrence: None)
  Receive Date: 20111026
  Receipt Date: 20111012
  Transmission Date: 20120403
  Serious: Yes (Hospitalization, Disabling)
  Sender: FDA-Public Use
  Company Number: 2011MA015145

PATIENT
  Age: 77 Year
  Sex: Female

DRUGS (1)
  1. CITALOPRAM HYDROBROMIDE [Suspect]
     Indication: DEPRESSION
     Dosage: 20 MG;PO
     Route: 048
     Dates: start: 20080301, end: 20110401

REACTIONS (3)
  - PELVIC FRACTURE [None]
  - THORACIC VERTEBRAL FRACTURE [None]
  - FEMUR FRACTURE [None]
